FAERS Safety Report 5382752-X (Version None)
Quarter: 2007Q2

REPORT INFORMATION
  Report Type: 
  Country: None (occurrence: None)
  Receive Date: 20070629
  Receipt Date: 20070430
  Transmission Date: 20071010
  Serious: Yes (Hospitalization, Disabling)
  Sender: FDA-Public Use
  Company Number: US200703000248

PATIENT
  Sex: Male

DRUGS (4)
  1. HUMALOG [Suspect]
     Indication: DIABETES MELLITUS
     Dosage: 4/D
     Dates: start: 20020101
  2. HUMALOG [Suspect]
     Indication: DIABETES MELLITUS
     Dosage: 4/D
     Dates: start: 20020101
  3. LANTUS [Concomitant]
  4. NORVASC [Concomitant]

REACTIONS (5)
  - ASTHMA [None]
  - BLOOD GLUCOSE INCREASED [None]
  - CARPAL TUNNEL SYNDROME [None]
  - OEDEMA PERIPHERAL [None]
  - PAIN [None]
